FAERS Safety Report 6929150-2 (Version None)
Quarter: 2010Q3

REPORT INFORMATION
  Report Type: 
  Country: None (occurrence: None)
  Receive Date: 20100817
  Receipt Date: 20100728
  Transmission Date: 20110219
  Serious: Yes (Hospitalization)
  Sender: FDA-Public Use
  Company Number: JP-MERCK-1008USA00084

PATIENT
  Age: 75 Year
  Sex: Female
  Weight: 20 kg

DRUGS (2)
  1. FOSAMAX [Suspect]
     Indication: OSTEOPOROSIS
     Route: 048
     Dates: start: 20040501, end: 20080501
  2. FOSAMAX [Suspect]
     Indication: SPINAL COMPRESSION FRACTURE
     Route: 048
     Dates: start: 20040501, end: 20080501

REACTIONS (6)
  - ANAEMIA [None]
  - BACTERAEMIA [None]
  - LIVER ABSCESS [None]
  - NUTRITIONAL CONDITION ABNORMAL [None]
  - OSTEONECROSIS OF JAW [None]
  - SUBCUTANEOUS ABSCESS [None]
